FAERS Safety Report 9792248 (Version 1)
Quarter: 2014Q1

REPORT INFORMATION
  Report Type: Report from Study
  Country: US (occurrence: US)
  Receive Date: 20140102
  Receipt Date: 20140102
  Transmission Date: 20141002
  Serious: No
  Sender: FDA-Public Use
  Company Number: PHEH2013US026430

PATIENT
  Age: 70 Year
  Sex: Male

DRUGS (4)
  1. TASIGNA [Suspect]
     Indication: ACUTE MYELOID LEUKAEMIA
     Dosage: 300 MG, BID
     Route: 048
     Dates: start: 20130719, end: 20131224
  2. TASIGNA [Suspect]
     Dosage: 300 MG, QD
     Route: 048
  3. SOTALOL [Concomitant]
     Indication: CARDIAC FLUTTER
     Dosage: UNK UKN, UNK
  4. ELIQUIS [Concomitant]
     Indication: CARDIAC FLUTTER
     Dosage: UNK UKN, UNK

REACTIONS (2)
  - Cardiac flutter [Recovered/Resolved]
  - Abdominal pain upper [Recovered/Resolved]
